FAERS Safety Report 8412319-8 (Version None)
Quarter: 2012Q2

REPORT INFORMATION
  Report Type: 
  Country: None (occurrence: None)
  Receive Date: 20120605
  Receipt Date: 20120514
  Transmission Date: 20120825
  Serious: No
  Sender: FDA-Public Use
  Company Number: US-AMGEN-USASP2012028312

PATIENT
  Sex: Female

DRUGS (1)
  1. ENBREL [Suspect]
     Indication: PSORIASIS
     Dosage: 50 MG, 1-2 TIMES PER WEEK
     Route: 058
     Dates: start: 20111007, end: 20120503

REACTIONS (5)
  - ALOPECIA [None]
  - FATIGUE [None]
  - HEADACHE [None]
  - INFECTIOUS MONONUCLEOSIS [None]
  - DECREASED APPETITE [None]
